FAERS Safety Report 8073678-1 (Version None)
Quarter: 2012Q1

REPORT INFORMATION
  Report Type: 
  Country: None (occurrence: None)
  Receive Date: 20120126
  Receipt Date: 20120120
  Transmission Date: 20120608
  Serious: Yes (Death, Hospitalization)
  Sender: FDA-Public Use
  Company Number: US-ROCHE-613569

PATIENT
  Sex: Male
  Weight: 78.6 kg

DRUGS (6)
  1. NEXAVAR [Suspect]
     Indication: RENAL CELL CARCINOMA
     Dosage: TOTALDOSE ADMINISTERED : 200 MG
     Route: 048
  2. STOOL SOFTENER NOS [Concomitant]
     Route: 048
  3. ASPIRIN [Concomitant]
     Route: 048
  4. OXYCODONE HCL EXTENDED-RELEASE [Concomitant]
     Route: 048
  5. AVASTIN [Suspect]
     Indication: RENAL CELL CARCINOMA
     Dosage: TOTAL DOSE ADMINISTERED 830 MG
     Route: 042
  6. MULTI-VITAMIN [Concomitant]
     Route: 048

REACTIONS (5)
  - DISEASE PROGRESSION [None]
  - ATRIAL FIBRILLATION [None]
  - MUSCULAR WEAKNESS [None]
  - BLOOD CREATININE INCREASED [None]
  - RENAL FAILURE ACUTE [None]
